FAERS Safety Report 4781727-9 (Version None)
Quarter: 2005Q3

REPORT INFORMATION
  Report Type: 
  Country: None (occurrence: None)
  Receive Date: 20050927
  Receipt Date: 20050913
  Transmission Date: 20060218
  Serious: Yes (Hospitalization)
  Sender: FDA-Public Use
  Company Number: 2005128120

PATIENT
  Age: 54 Year
  Sex: Female
  Weight: 68.0396 kg

DRUGS (2)
  1. DRAMAMINE (DIMENHYDRINATE) [Suspect]
     Indication: MOTION SICKNESS
     Dosage: TWICE DAILY, ORAL
     Route: 048
     Dates: start: 20050101, end: 20050910
  2. DRUG UNSPECIFIED [Concomitant]

REACTIONS (5)
  - CARDIAC DISORDER [None]
  - CHEST PAIN [None]
  - DIZZINESS [None]
  - NAUSEA [None]
  - VIRAL INFECTION [None]
